FAERS Safety Report 20625583 (Version 1)
Quarter: 2022Q1

REPORT INFORMATION
  Report Type: Spontaneous
  Country: US (occurrence: None)
  Receive Date: 20220323
  Receipt Date: 20220323
  Transmission Date: 20220423
  Serious: No
  Sender: FDA-Public Use
  Company Number: US-ROCHE-2945975

PATIENT
  Sex: Male

DRUGS (17)
  1. ERIVEDGE [Suspect]
     Active Substance: VISMODEGIB
     Indication: Basal cell carcinoma
     Route: 048
  2. ALPRAZOLAM [Concomitant]
     Active Substance: ALPRAZOLAM
  3. ATORVASTATIN [Concomitant]
     Active Substance: ATORVASTATIN
  4. BACLOFEN [Concomitant]
     Active Substance: BACLOFEN
  5. BREO ELLIPTA [Concomitant]
     Active Substance: FLUTICASONE FUROATE\VILANTEROL TRIFENATATE
  6. DONEPEZIL [Concomitant]
     Active Substance: DONEPEZIL
  7. FLUTICASONE [Concomitant]
     Active Substance: FLUTICASONE
  8. GABAPENTIN [Concomitant]
     Active Substance: GABAPENTIN
  9. GEMFIBROZIL [Concomitant]
     Active Substance: GEMFIBROZIL
  10. HYDROCODONE [Concomitant]
     Active Substance: HYDROCODONE
  11. IPRATROPIUM [Concomitant]
     Active Substance: IPRATROPIUM
  12. PANTOPRAZOLE [Concomitant]
     Active Substance: PANTOPRAZOLE
  13. SILDENAFIL [Concomitant]
     Active Substance: SILDENAFIL
  14. SUMATRIPTAN [Concomitant]
     Active Substance: SUMATRIPTAN
  15. TAMSULOSIN [Concomitant]
     Active Substance: TAMSULOSIN
  16. TRELEGY ELLIPTA [Concomitant]
     Active Substance: FLUTICASONE FUROATE\UMECLIDINIUM BROMIDE\VILANTEROL TRIFENATATE
  17. VENTOLIN [Concomitant]
     Active Substance: ALBUTEROL SULFATE

REACTIONS (1)
  - Muscle spasms [Not Recovered/Not Resolved]
